FAERS Safety Report 20762361 (Version 1)
Quarter: 2022Q2

REPORT INFORMATION
  Report Type: Spontaneous
  Country: CN (occurrence: None)
  Receive Date: 20220428
  Receipt Date: 20220428
  Transmission Date: 20220720
  Serious: Yes (Other)
  Sender: FDA-Public Use
  Company Number: CN-ROCHE-3080772

PATIENT
  Age: 69 Year
  Sex: Male
  Weight: 80 kg

DRUGS (4)
  1. OBINUTUZUMAB [Suspect]
     Active Substance: OBINUTUZUMAB
     Indication: Follicular lymphoma
     Dosage: D1, 8, 15
     Route: 042
     Dates: start: 20220202
  2. OBINUTUZUMAB [Suspect]
     Active Substance: OBINUTUZUMAB
     Dosage: D1
     Route: 042
     Dates: start: 20220223
  3. BENDAMUSTINE [Concomitant]
     Active Substance: BENDAMUSTINE
     Indication: Follicular lymphoma
     Dosage: D2-3
     Route: 065
     Dates: start: 20220202
  4. BENDAMUSTINE [Concomitant]
     Active Substance: BENDAMUSTINE
     Dosage: D2-3
     Route: 065
     Dates: start: 20220223

REACTIONS (2)
  - Gastrointestinal disorder [Recovering/Resolving]
  - Myelosuppression [Recovering/Resolving]
